FAERS Safety Report 8436594-9 (Version None)
Quarter: 2012Q2

REPORT INFORMATION
  Report Type: 
  Country: None (occurrence: None)
  Receive Date: 20120614
  Receipt Date: 20120605
  Transmission Date: 20120825
  Serious: Yes (Hospitalization, Other)
  Sender: FDA-Public Use
  Company Number: US-ASTRAZENECA-2010SE47123

PATIENT
  Age: 67 Year
  Sex: Female

DRUGS (12)
  1. MUCINEX [Concomitant]
  2. VITAMIN D [Concomitant]
  3. SYMBICORT [Suspect]
     Dosage: PRESCRIPTION FOR 2 PUFFS TWO TIMES A DAY, HOWEVER SHE HAS TAKING ONE PUFF TWICE DAILY
     Route: 055
  4. OXYGEN [Concomitant]
  5. CELEXA [Concomitant]
  6. TENORMIN [Suspect]
     Route: 048
  7. SYMBICORT [Suspect]
     Dosage: 160/4.5 MCG DAILY
     Route: 055
  8. TENORMIN [Suspect]
     Route: 048
     Dates: start: 20060801
  9. ASCORBIC ACID [Concomitant]
  10. TENORMIN [Suspect]
     Route: 048
  11. PRIVINIL [Concomitant]
  12. LISONOMYD [Concomitant]

REACTIONS (16)
  - CONTUSION [None]
  - DYSPNOEA [None]
  - URINARY TRACT INFECTION [None]
  - DRUG DOSE OMISSION [None]
  - FUNGAL INFECTION [None]
  - NAUSEA [None]
  - HYPERTHYROIDISM [None]
  - PSEUDOMONAS INFECTION [None]
  - DRY MOUTH [None]
  - TOTAL LUNG CAPACITY DECREASED [None]
  - CANDIDIASIS [None]
  - CARDIAC FAILURE [None]
  - STAPHYLOCOCCAL INFECTION [None]
  - OXYGEN CONSUMPTION DECREASED [None]
  - INTENTIONAL DRUG MISUSE [None]
  - COUGH [None]
